FAERS Safety Report 7403043-9 (Version None)
Quarter: 2011Q1

REPORT INFORMATION
  Report Type: 
  Country: None (occurrence: None)
  Receive Date: 20110331
  Receipt Date: 20110325
  Transmission Date: 20110831
  Serious: Yes (Other)
  Sender: FDA-Public Use
  Company Number: US-1185558

PATIENT
  Age: 46 Year
  Sex: Male

DRUGS (1)
  1. FLUOROMETHOLONE 0.1% OPHTHALMIC SUSPENSION [Suspect]
     Indication: POSTOPERATIVE CARE
     Dosage: (QID OPHTHALMIC)
     Route: 047

REACTIONS (9)
  - EYE PAIN [None]
  - COLOUR VISION TESTS ABNORMAL RED-GREEN [None]
  - INTRAOCULAR PRESSURE INCREASED [None]
  - LOSS OF VISUAL CONTRAST SENSITIVITY [None]
  - COLOUR BLINDNESS ACQUIRED [None]
  - OPTIC ISCHAEMIC NEUROPATHY [None]
  - ALTERED VISUAL DEPTH PERCEPTION [None]
  - VISUAL FIELD DEFECT [None]
  - VISION BLURRED [None]
